FAERS Safety Report 12199496 (Version 1)
Quarter: 2016Q1

REPORT INFORMATION
  Report Type: Spontaneous
  Country: GB (occurrence: GB)
  Receive Date: 20160322
  Receipt Date: 20160322
  Transmission Date: 20160526
  Serious: Yes (Disabling)
  Sender: FDA-Public Use
  Company Number: GB-TEVA-644952ACC

PATIENT
  Age: 94 Year
  Sex: Female
  Weight: 38 kg

DRUGS (12)
  1. APIXABAN [Concomitant]
     Active Substance: APIXABAN
     Dosage: 2 DOSAGE FORMS DAILY;
     Dates: start: 20150602
  2. PIROXICAM. [Concomitant]
     Active Substance: PIROXICAM
     Dosage: THREE TIMES DAILY.
     Dates: start: 20151102
  3. PREDNISOLONE. [Concomitant]
     Active Substance: PREDNISOLONE
     Dosage: 1 DOSAGE FORMS DAILY;
     Dates: start: 20151102
  4. DOXYCYCLINE. [Suspect]
     Active Substance: DOXYCYCLINE
     Dates: start: 20160225
  5. ALLOPURINOL. [Concomitant]
     Active Substance: ALLOPURINOL
     Dosage: 1 DOSAGE FORMS DAILY;
     Dates: start: 20151201, end: 20160104
  6. LETROZOLE. [Concomitant]
     Active Substance: LETROZOLE
     Dosage: 1 DOSAGE FORMS DAILY;
     Dates: start: 20150513
  7. BUMETANIDE. [Concomitant]
     Active Substance: BUMETANIDE
     Dosage: 1 DOSAGE FORMS DAILY;
     Dates: start: 20151118
  8. FERROUS FUMARATE [Concomitant]
     Active Substance: FERROUS FUMARATE
     Dosage: 1 DOSAGE FORMS DAILY;
     Dates: start: 20150602
  9. OMEPRAZOLE. [Concomitant]
     Active Substance: OMEPRAZOLE
     Dosage: 1 DOSAGE FORMS DAILY;
     Dates: start: 20141208
  10. BISOPROLOL [Concomitant]
     Active Substance: BISOPROLOL
     Dosage: 1 DOSAGE FORMS DAILY;
     Dates: start: 20150423
  11. CO-DYDRAMOL [Concomitant]
     Active Substance: ACETAMINOPHEN\DIHYDROCODEINE
     Dosage: TAKE 2, 4 TIMES A DAY.
     Dates: start: 20160224
  12. RAMIPRIL. [Concomitant]
     Active Substance: RAMIPRIL
     Dosage: 1 DOSAGE FORMS DAILY;
     Dates: start: 20151118

REACTIONS (2)
  - Rash [Recovered/Resolved]
  - Oedema peripheral [Recovered/Resolved]

NARRATIVE: CASE EVENT DATE: 20160301
